FAERS Safety Report 17184629 (Version 1)
Quarter: 2019Q4

REPORT INFORMATION
  Report Type: Spontaneous
  Country: US (occurrence: US)
  Receive Date: 20191127
  Receipt Date: 20191127
  Transmission Date: 20200122
  Serious: No
  Sender: FDA-Public Use
  Company Number: None

PATIENT
  Age: 69 Year
  Sex: Female

DRUGS (2)
  1. OLUMIANT [Suspect]
     Active Substance: BARICITINIB
     Indication: RHEUMATOID ARTHRITIS
     Route: 048
     Dates: start: 201909
  2. OLUMIANT [Suspect]
     Active Substance: BARICITINIB
     Indication: PSORIATIC ARTHROPATHY
     Route: 048
     Dates: start: 201909

REACTIONS (1)
  - Infection [None]
